FAERS Safety Report 7230823-5 (Version None)
Quarter: 2011Q1

REPORT INFORMATION
  Report Type: 
  Country: None (occurrence: None)
  Receive Date: 20110118
  Receipt Date: 20110106
  Transmission Date: 20110831
  Serious: Yes (Hospitalization, Other)
  Sender: FDA-Public Use
  Company Number: US-ELI_LILLY_AND_COMPANY-US201101001929

PATIENT
  Sex: Female
  Weight: 90.8 kg

DRUGS (18)
  1. VITAMIN B-12 [Concomitant]
     Indication: SUPPLEMENTATION THERAPY
     Dates: start: 20100112
  2. BYSTOLIC [Concomitant]
     Indication: HYPERTENSION
     Dosage: 5 MG, DAILY (1/D)
     Route: 048
     Dates: start: 19800101
  3. TRAZODONE HCL [Concomitant]
     Indication: DEPRESSION
     Dosage: 50 MG, EACH EVENING
     Route: 048
     Dates: start: 20050101
  4. CARBOPLATIN [Suspect]
     Indication: NON-SMALL CELL LUNG CANCER
     Dosage: 6 AUC, DAY 1 EVERY 21 DAYS
     Route: 042
     Dates: start: 20100129, end: 20100405
  5. FLUOXETINE [Concomitant]
     Indication: DEPRESSION
     Dosage: 10 MG, DAILY (1/D)
     Route: 048
     Dates: start: 20050101
  6. ACIPHEX [Concomitant]
     Indication: DYSPEPSIA
     Dosage: UNK, EACH MORNING
     Dates: start: 20101026
  7. AMLODIPINE [Concomitant]
     Indication: HYPERTENSION
     Dosage: 10 MG, EACH MORNING
     Route: 048
     Dates: start: 19800101
  8. CIPRO [Concomitant]
     Route: 048
  9. PEMETREXED [Suspect]
     Dosage: 500 MG/M2, DAY 1 EVEY 21 DAYS
     Route: 042
     Dates: start: 20100426, end: 20101217
  10. FOLIC ACID [Concomitant]
     Indication: SUPPLEMENTATION THERAPY
     Dosage: 1 MG, DAILY (1/D)
     Dates: start: 20100112
  11. NABUMETONE [Concomitant]
     Indication: ARTHRITIS
     Dosage: 500 MG, DAILY (1/D)
     Route: 048
     Dates: start: 19850101
  12. OXYBUTYNIN [Concomitant]
     Indication: HYPERTONIC BLADDER
     Dosage: 10 MG, DAILY (1/D)
     Dates: start: 20090101
  13. SINGULAIR [Concomitant]
     Indication: ASTHMA
     Dosage: 10 MG, DAILY (1/D)
     Dates: start: 20000101
  14. BEVACIZUMAB [Suspect]
     Dosage: 15 MG/KG, DAY 1 EVERY 21 DAYS
     Route: 042
     Dates: start: 20100426, end: 20101217
  15. BEVACIZUMAB [Suspect]
     Indication: NON-SMALL CELL LUNG CANCER
     Dosage: 15 MG/KG, DAY 1 EVERY 21 DAYS
     Route: 042
     Dates: start: 20100129, end: 20100405
  16. PEMETREXED [Suspect]
     Indication: NON-SMALL CELL LUNG CANCER
     Dosage: 500 MG/M2, DAY 1 EVEY 21 DAYS
     Route: 042
     Dates: start: 20100129, end: 20100405
  17. DIOVAN HCT [Concomitant]
     Indication: HYPERTENSION
     Dosage: UNK, EACH MORNING
     Route: 048
     Dates: start: 19800101
  18. MULTI-VITAMIN [Concomitant]
     Indication: SUPPLEMENTATION THERAPY
     Dosage: UNK, DAILY (1/D)
     Route: 048
     Dates: start: 19700101

REACTIONS (2)
  - DIVERTICULAR PERFORATION [None]
  - ANAEMIA [None]
